FAERS Safety Report 13307526 (Version 1)
Quarter: 2017Q1

REPORT INFORMATION
  Report Type: Spontaneous
  Country: DE (occurrence: DE)
  Receive Date: 20170308
  Receipt Date: 20170308
  Transmission Date: 20170428
  Serious: Yes (Other)
  Sender: FDA-Public Use
  Company Number: DE-MYLANLABS-2017M1014311

PATIENT

DRUGS (1)
  1. LEVOFLOXACIN MYLAN [Suspect]
     Active Substance: LEVOFLOXACIN
     Indication: LUNG INFECTION PSEUDOMONAL
     Dosage: DAILY DOSE: 500 MG MILLGRAM(S) EVERY DAYS
     Route: 048
     Dates: start: 20170213, end: 20170220

REACTIONS (1)
  - Joint swelling [Recovering/Resolving]

NARRATIVE: CASE EVENT DATE: 20170219
